FAERS Safety Report 21143869 (Version 2)
Quarter: 2022Q3

REPORT INFORMATION
  Report Type: Report from Study
  Country: US (occurrence: US)
  Receive Date: 20220728
  Receipt Date: 20220819
  Transmission Date: 20221027
  Serious: Yes (Hospitalization, Other)
  Sender: FDA-Public Use
  Company Number: US-BRISTOL-MYERS SQUIBB COMPANY-2022-078004

PATIENT
  Age: 73 Year
  Sex: Female
  Weight: 99.79 kg

DRUGS (25)
  1. REVLIMID [Suspect]
     Active Substance: LENALIDOMIDE
     Indication: Plasma cell myeloma
     Route: 048
     Dates: start: 202204
  2. REVLIMID [Suspect]
     Active Substance: LENALIDOMIDE
     Indication: Osteoporosis
     Dosage: DAILY FOR 21 DAYS FOLLOW BY 7 DAYS OFF
     Route: 048
     Dates: start: 202204
  3. REVLIMID [Suspect]
     Active Substance: LENALIDOMIDE
     Indication: Breast cancer female
  4. REVLIMID [Suspect]
     Active Substance: LENALIDOMIDE
     Indication: Gastrooesophageal reflux disease
  5. REVLIMID [Suspect]
     Active Substance: LENALIDOMIDE
     Indication: Polyneuropathy
  6. REVLIMID [Suspect]
     Active Substance: LENALIDOMIDE
     Indication: Meningioma benign
  7. VITAMINS NOS [Concomitant]
     Active Substance: VITAMINS
  8. ASPIRIN [Concomitant]
     Active Substance: ASPIRIN
  9. PEPCID [Concomitant]
     Active Substance: FAMOTIDINE
  10. ROSUVASTATIN CALCIUM [Concomitant]
     Active Substance: ROSUVASTATIN CALCIUM
  11. ACYCLOVIR [Concomitant]
     Active Substance: ACYCLOVIR
  12. DEXAMETHASONE [Concomitant]
     Active Substance: DEXAMETHASONE
  13. GLUCOSAMINE-CHONDROITIN-MSM [Concomitant]
  14. COMPAZINE [Concomitant]
     Active Substance: PROCHLORPERAZINE MALEATE
  15. SENOKOT-S [Concomitant]
     Active Substance: DOCUSATE SODIUM\SENNOSIDES
  16. MELATONIN [Concomitant]
     Active Substance: MELATONIN
  17. FISH OIL [Concomitant]
     Active Substance: FISH OIL
  18. CALCIUM CARBONATE\VITAMIN D [Concomitant]
     Active Substance: CALCIUM CARBONATE\VITAMIN D
  19. REFRESH OPTIVE [Concomitant]
     Active Substance: CARBOXYMETHYLCELLULOSE SODIUM\GLYCERIN
  20. SYNTHROID [Concomitant]
     Active Substance: LEVOTHYROXINE SODIUM
  21. PROZAC [Concomitant]
     Active Substance: FLUOXETINE HYDROCHLORIDE
  22. VITAMIN B12 [Concomitant]
     Active Substance: CYANOCOBALAMIN
  23. HERBALS\TURMERIC [Concomitant]
     Active Substance: HERBALS\TURMERIC
  24. ANASTROZOLE [Concomitant]
     Active Substance: ANASTROZOLE
  25. VELCADE [Concomitant]
     Active Substance: BORTEZOMIB

REACTIONS (6)
  - Constipation [Unknown]
  - Syncope [Not Recovered/Not Resolved]
  - Confusional state [Not Recovered/Not Resolved]
  - Nausea [Unknown]
  - Fatigue [Unknown]
  - Gastrointestinal disorder [Unknown]
